FAERS Safety Report 23960564 (Version 1)
Quarter: 2024Q2

REPORT INFORMATION
  Report Type: Spontaneous
  Country: US (occurrence: US)
  Receive Date: 20240611
  Receipt Date: 20240611
  Transmission Date: 20240716
  Serious: No
  Sender: FDA-Public Use
  Company Number: US-SANDOZ-SDZ2024US056453

PATIENT
  Sex: Female

DRUGS (1)
  1. POLYMYXIN B SULFATE\TRIMETHOPRIM [Suspect]
     Active Substance: POLYMYXIN B SULFATE\TRIMETHOPRIM
     Indication: Product used for unknown indication
     Dosage: 1 DROP, Q4H
     Route: 065
     Dates: start: 20240606

REACTIONS (7)
  - COVID-19 [Unknown]
  - Blister [Unknown]
  - Ear infection [Unknown]
  - Eye infection [Unknown]
  - Pruritus [Unknown]
  - Eye irritation [Unknown]
  - Pain [Unknown]
